FAERS Safety Report 18851427 (Version 1)
Quarter: 2021Q1

REPORT INFORMATION
  Report Type: Spontaneous
  Country: US (occurrence: US)
  Receive Date: 20210204
  Receipt Date: 20210204
  Transmission Date: 20210420
  Serious: No
  Sender: FDA-Public Use
  Company Number: None

PATIENT
  Age: 38 Year
  Sex: Female
  Weight: 54 kg

DRUGS (13)
  1. DEXCOM G6 [Concomitant]
  2. VITAMIN D [Concomitant]
     Active Substance: VITAMIN D NOS
  3. PEPCID AC [Concomitant]
     Active Substance: FAMOTIDINE
  4. VITAMIN B COMPLEX [Concomitant]
     Active Substance: CYANOCOBALAMIN\DEXPANTHENOL\NIACINAMIDE\PYRIDOXINE HYDROCHLORIDE\RIBOFLAVIN 5^-PHOSPHATE SODIUM\THIAMINE HYDROCHLORIDE\VITAMIN B COMPLEX
  5. CREON [Concomitant]
     Active Substance: PANCRELIPASE AMYLASE\PANCRELIPASE LIPASE\PANCRELIPASE PROTEASE
  6. TRIKAFTA [Suspect]
     Active Substance: ELEXACAFTOR\IVACAFTOR\TEZACAFTOR
     Indication: CYSTIC FIBROSIS
     Dates: start: 20191129, end: 20210201
  7. IRON [Concomitant]
     Active Substance: IRON
  8. VITAMIN K2 [Concomitant]
     Active Substance: MENAQUINONE 6
  9. LEXAPRO [Concomitant]
     Active Substance: ESCITALOPRAM OXALATE
  10. ALBUTEROL NEBULIZER [Concomitant]
     Active Substance: ALBUTEROL
  11. PULMOZYME [Concomitant]
     Active Substance: DORNASE ALFA
  12. AZTREONAM NEBULIZER [Concomitant]
  13. MULTI VITAMIN [Concomitant]
     Active Substance: VITAMINS

REACTIONS (8)
  - Menorrhagia [None]
  - Disturbance in attention [None]
  - Feeling abnormal [None]
  - Night sweats [None]
  - Irritability [None]
  - Aphasia [None]
  - Anxiety [None]
  - Depression [None]

NARRATIVE: CASE EVENT DATE: 20191129
